FAERS Safety Report 5191262-4 (Version None)
Quarter: 2006Q4

REPORT INFORMATION
  Report Type: 
  Country: None (occurrence: None)
  Receive Date: 20061218
  Receipt Date: 20061213
  Transmission Date: 20070319
  Serious: Yes (Death)
  Sender: FDA-Public Use
  Company Number: HQWYE144421OCT05

PATIENT
  Age: 61 Year
  Sex: Male

DRUGS (8)
  1. RAPAMUNE [Suspect]
     Indication: PROPHYLAXIS AGAINST TRANSPLANT REJECTION
     Dosage: 1 MG 1X PER 1 DAY ORAL
     Route: 048
     Dates: start: 20050719, end: 20051018
  2. AZATHIOPRINE [Concomitant]
  3. ESOMEPRAZOLE (ESOMEPRAZOLE) [Concomitant]
  4. CYCLOSPORINE [Concomitant]
  5. INSULIN [Concomitant]
  6. ACETAMINOPHEN [Concomitant]
  7. BENDROFLUAZIDE (BENDROFLUMETHIAZIDE) [Concomitant]
  8. FLOMAX [Concomitant]

REACTIONS (6)
  - COSTOVERTEBRAL ANGLE TENDERNESS [None]
  - DIARRHOEA [None]
  - DISEASE PROGRESSION [None]
  - IMMUNOSUPPRESSION [None]
  - METASTASES TO LIVER [None]
  - METASTASES TO LYMPH NODES [None]
